FAERS Safety Report 6871257-2 (Version None)
Quarter: 2010Q3

REPORT INFORMATION
  Report Type: 
  Country: None (occurrence: None)
  Receive Date: 20100723
  Receipt Date: 20100715
  Transmission Date: 20110219
  Serious: Yes (Other)
  Sender: FDA-Public Use
  Company Number: US-ROCHE-713010

PATIENT
  Sex: Female
  Weight: 71.2 kg

DRUGS (2)
  1. ACTEMRA [Suspect]
     Route: 042
     Dates: start: 20100513, end: 20100618
  2. METHOTREXATE [Concomitant]
     Indication: RHEUMATOID ARTHRITIS

REACTIONS (1)
  - PUSTULAR PSORIASIS [None]
